FAERS Safety Report 5473897-4 (Version None)
Quarter: 2007Q3

REPORT INFORMATION
  Report Type: 
  Country: None (occurrence: None)
  Receive Date: 20070831
  Receipt Date: 20070618
  Transmission Date: 20080115
  Serious: No
  Sender: FDA-Public Use
  Company Number: 241203

PATIENT
  Sex: Male

DRUGS (3)
  1. LUCENTIS(RANIBIZUMAB) POWDER AND SOLVENT FOR SOLUTION FOR  100 MG [Suspect]
     Indication: MACULAR DEGENERATION
     Dates: start: 20070202
  2. AVASTIN [Suspect]
  3. ACEBUTOLOL [Concomitant]

REACTIONS (3)
  - DRUG INEFFECTIVE [None]
  - EYE PAIN [None]
  - EYELID OEDEMA [None]
